FAERS Safety Report 7685811-1 (Version None)
Quarter: 2011Q3

REPORT INFORMATION
  Report Type: 
  Country: None (occurrence: None)
  Receive Date: 20110815
  Receipt Date: 20110815
  Transmission Date: 20111222
  Serious: Yes (Other)
  Sender: FDA-Public Use
  Company Number: None

PATIENT
  Age: 49 Year
  Sex: Female

DRUGS (1)
  1. MICONAZOLE NITRATE [Suspect]
     Indication: FUNGAL INFECTION
     Dosage: 1200 MG
     Route: 067
     Dates: start: 20110812, end: 20110812

REACTIONS (7)
  - VULVOVAGINAL PAIN [None]
  - VAGINAL DISCHARGE [None]
  - ABDOMINAL PAIN [None]
  - VULVOVAGINAL SWELLING [None]
  - FEELING ABNORMAL [None]
  - MALAISE [None]
  - VULVOVAGINAL BURNING SENSATION [None]
